FAERS Safety Report 23365942 (Version 1)
Quarter: 2024Q1

REPORT INFORMATION
  Report Type: Spontaneous
  Country: US (occurrence: None)
  Receive Date: 20240103
  Receipt Date: 20240103
  Transmission Date: 20240410
  Serious: No
  Sender: FDA-Public Use
  Company Number: None

PATIENT
  Age: 65 Year
  Sex: Female

DRUGS (1)
  1. NUCALA [Suspect]
     Active Substance: MEPOLIZUMAB
     Dosage: FREQUENCY : MONTHLY;?
     Route: 058
     Dates: start: 20230104, end: 20231207

REACTIONS (2)
  - Dyskinesia [None]
  - Injection related reaction [None]

NARRATIVE: CASE EVENT DATE: 20231214
